FAERS Safety Report 6445441-6 (Version None)
Quarter: 2009Q4

REPORT INFORMATION
  Report Type: 
  Country: None (occurrence: None)
  Receive Date: 20091110
  Receipt Date: 20090804
  Transmission Date: 20100525
  Serious: No
  Sender: FDA-Public Use
  Company Number: 1000007961

PATIENT
  Age: 52 Year
  Sex: Female

DRUGS (8)
  1. SAVELLA [Suspect]
     Indication: FIBROMYALGIA
     Dosage: 12.5 MG (12.5 MG, 1 IN 1 D), ORAL : 25 MG (12.5 MG, 2 IN 1 D), ORAL : 50 MG (25 MG, 2 IN 1 D), ORAL
     Route: 048
     Dates: start: 20090604, end: 20090604
  2. SAVELLA [Suspect]
     Indication: FIBROMYALGIA
     Dosage: 12.5 MG (12.5 MG, 1 IN 1 D), ORAL : 25 MG (12.5 MG, 2 IN 1 D), ORAL : 50 MG (25 MG, 2 IN 1 D), ORAL
     Route: 048
     Dates: start: 20090605, end: 20090606
  3. SAVELLA [Suspect]
     Indication: FIBROMYALGIA
     Dosage: 12.5 MG (12.5 MG, 1 IN 1 D), ORAL : 25 MG (12.5 MG, 2 IN 1 D), ORAL : 50 MG (25 MG, 2 IN 1 D), ORAL
     Route: 048
     Dates: start: 20090607, end: 20090610
  4. SAVELLA [Suspect]
     Indication: FIBROMYALGIA
     Dosage: 100 MG (50 MG, 2 IN 1 D), ORAL : 50 MG (50 MG, 1 IN 1 D), ORAL
     Route: 048
     Dates: start: 20090611, end: 20090714
  5. SAVELLA [Suspect]
     Indication: FIBROMYALGIA
     Dosage: 100 MG (50 MG, 2 IN 1 D), ORAL : 50 MG (50 MG, 1 IN 1 D), ORAL
     Route: 048
     Dates: start: 20090715
  6. ULTRACET [Concomitant]
  7. AMBIEN CR [Concomitant]
  8. LEVOXYL [Concomitant]

REACTIONS (7)
  - ABNORMAL SENSATION IN EYE [None]
  - CHILLS [None]
  - EYE PAIN [None]
  - HEADACHE [None]
  - HYPERHIDROSIS [None]
  - NECK PAIN [None]
  - VISION BLURRED [None]
